FAERS Safety Report 12689898 (Version 2)
Quarter: 2016Q3

REPORT INFORMATION
  Report Type: Spontaneous
  Country: GB (occurrence: GB)
  Receive Date: 20160826
  Receipt Date: 20160829
  Transmission Date: 20161109
  Serious: Yes (Other)
  Sender: FDA-Public Use
  Company Number: GB-PFIZER INC-2016393992

PATIENT
  Age: 85 Year
  Sex: Female
  Weight: 70 kg

DRUGS (14)
  1. DOXAZOSIN MESILATE [Suspect]
     Active Substance: DOXAZOSIN MESYLATE
     Dosage: UNK
     Dates: start: 20150717
  2. CLOTRIMAZOLE. [Concomitant]
     Active Substance: CLOTRIMAZOLE
     Dosage: APPLY 2-3 TIMES/DAY
     Dates: start: 20160628, end: 20160712
  3. LANSOPRAZOLE. [Concomitant]
     Active Substance: LANSOPRAZOLE
     Dosage: 1 DF, 1X/DAY (IN THE MORNING)
     Dates: start: 20021212
  4. NAPROXEN. [Concomitant]
     Active Substance: NAPROXEN
     Dosage: 1 DF, 2X/DAY
     Dates: start: 20110302, end: 20160708
  5. CITALOPRAM [Concomitant]
     Active Substance: CITALOPRAM HYDROBROMIDE
     Dosage: 1 DF, 1X/DAY
     Dates: start: 20141126
  6. OXYBUTYNIN [Concomitant]
     Active Substance: OXYBUTYNIN
     Dosage: 1 DF, 2X/DAY
     Dates: start: 20160708, end: 20160805
  7. ASPIRIN /00002701/ [Concomitant]
     Active Substance: ASPIRIN
     Dosage: 1 DF, 1X/DAY (IN THE  MORNING)
     Dates: start: 20150603
  8. CODEINE PHOSPHATE [Concomitant]
     Active Substance: CODEINE PHOSPHATE
     Indication: PAIN
     Dosage: TAKE ONE TO TWO 4 TIMES A DAY
     Dates: start: 20160708
  9. DIAZEPAM. [Concomitant]
     Active Substance: DIAZEPAM
     Dosage: TAKE ONE OR 2 TABLETS 1-2 HOURS BEFORE PROCEDURE
     Dates: start: 20160606, end: 20160613
  10. PARACETAMOL [Concomitant]
     Active Substance: ACETAMINOPHEN
     Dosage: 2 DF, 4X/DAY
     Dates: start: 20140226
  11. PRAVASTATIN. [Concomitant]
     Active Substance: PRAVASTATIN
     Dosage: 1 DF, 1X/DAY AT NIGHT
     Dates: start: 20110803
  12. CLOPIDOGREL [Concomitant]
     Active Substance: CLOPIDOGREL BISULFATE
     Dosage: 1 DF, 1X/DAY
     Dates: start: 20160627, end: 20160708
  13. FENBID [Concomitant]
     Active Substance: IBUPROFEN
     Dosage: 1 DF, 3X/DAY
     Dates: start: 20160719, end: 20160729
  14. FERROUS GLUCONATE [Concomitant]
     Active Substance: FERROUS GLUCONATE
     Dosage: 1 DF, 1X/DAY
     Dates: start: 20160323

REACTIONS (2)
  - Oedema peripheral [Recovered/Resolved]
  - Myalgia [Recovered/Resolved]

NARRATIVE: CASE EVENT DATE: 20160720
